FAERS Safety Report 9298058 (Version 2)
Quarter: 2013Q2

REPORT INFORMATION
  Report Type: Spontaneous
  Country: IT (occurrence: IT)
  Receive Date: 20130520
  Receipt Date: 20130605
  Transmission Date: 20140414
  Serious: Yes (Hospitalization)
  Sender: FDA-Public Use
  Company Number: IT-ELI_LILLY_AND_COMPANY-IT201305003675

PATIENT
  Age: 76 Year
  Sex: Female

DRUGS (9)
  1. HUMULIN REGULAR [Suspect]
     Indication: TYPE 1 DIABETES MELLITUS
     Dosage: 12 IU, QD
     Route: 058
     Dates: start: 20130321, end: 20130508
  2. LANTUS [Concomitant]
     Indication: TYPE 1 DIABETES MELLITUS
     Dosage: 18 IU, QD
     Route: 058
     Dates: start: 20130317, end: 20130508
  3. SEQUACOR [Concomitant]
  4. TRIATEC [Concomitant]
     Dosage: 2.5 MG, UNKNOWN
     Route: 048
  5. ADALAT [Concomitant]
  6. FERRO-GRAD [Concomitant]
     Dosage: 105 MG, UNKNOWN
  7. PLASIL [Concomitant]
  8. CLEXANE [Concomitant]
     Dosage: 4000 IU, UNKNOWN
  9. ANTRA [Concomitant]

REACTIONS (3)
  - Hypoglycaemia [Recovered/Resolved]
  - Bradykinesia [Recovered/Resolved]
  - Bradyphrenia [Recovered/Resolved]
